FAERS Safety Report 24213624 (Version 1)
Quarter: 2024Q3

REPORT INFORMATION
  Report Type: Spontaneous
  Country: US (occurrence: None)
  Receive Date: 20240814
  Receipt Date: 20240814
  Transmission Date: 20241016
  Serious: Yes (Life-Threatening, Hospitalization, Other)
  Sender: Public
  Company Number: None

PATIENT
  Age: 63 Year
  Sex: Female
  Weight: 71.91 kg

DRUGS (3)
  1. OLUMIANT [Suspect]
     Active Substance: BARICITINIB
     Indication: Rheumatoid arthritis
     Dosage: FREQUENCY : DAILY;?
     Route: 048
     Dates: start: 20191121, end: 20240715
  2. LOSARTAN [Concomitant]
     Active Substance: LOSARTAN\LOSARTAN POTASSIUM
     Dates: start: 20201110
  3. ALENDRONATE [Concomitant]
     Active Substance: ALENDRONATE SODIUM
     Dates: start: 20210630

REACTIONS (7)
  - Necrotising retinitis [None]
  - Meningitis [None]
  - Varicella zoster virus infection [None]
  - Cerebrovascular accident [None]
  - Herpes virus infection [None]
  - White blood cell disorder [None]
  - White blood cell count increased [None]

NARRATIVE: CASE EVENT DATE: 20240610
